FAERS Safety Report 12105871 (Version 4)
Quarter: 2016Q2

REPORT INFORMATION
  Report Type: Report from Study
  Country: US (occurrence: US)
  Receive Date: 20160223
  Receipt Date: 20160408
  Transmission Date: 20160815
  Serious: Yes (Hospitalization, Other)
  Sender: FDA-Public Use
  Company Number: US-GILEAD-2016-0200034

PATIENT
  Age: 13 Year
  Sex: Male

DRUGS (7)
  1. AMBRISENTAN [Suspect]
     Active Substance: AMBRISENTAN
     Indication: PULMONARY HYPERTENSION
     Dosage: 10 MG, QD
     Route: 048
     Dates: start: 20150720
  2. LOVENOX [Concomitant]
     Active Substance: ENOXAPARIN SODIUM
  3. ASA [Concomitant]
     Active Substance: ASPIRIN
  4. DIGOXIN. [Concomitant]
     Active Substance: DIGOXIN
  5. ADCIRCA [Concomitant]
     Active Substance: TADALAFIL
     Indication: PULMONARY HYPERTENSION
     Dosage: 40 MG, UNK
     Route: 048
     Dates: start: 2015
  6. LASIX [Concomitant]
     Active Substance: FUROSEMIDE
  7. TADALAFIL [Concomitant]
     Active Substance: TADALAFIL

REACTIONS (4)
  - Dyspnoea [Recovered/Resolved]
  - Off label use [Not Recovered/Not Resolved]
  - Pneumonia [Not Recovered/Not Resolved]
  - Pyrexia [Recovered/Resolved]

NARRATIVE: CASE EVENT DATE: 20150720
